FAERS Safety Report 12784407 (Version 1)
Quarter: 2016Q3

REPORT INFORMATION
  Report Type: Spontaneous
  Country: CA (occurrence: CA)
  Receive Date: 20160927
  Receipt Date: 20160927
  Transmission Date: 20161109
  Serious: Yes (Other)
  Sender: FDA-Public Use
  Company Number: CA-BEH-2013036360

PATIENT
  Age: 30 Month
  Sex: Male

DRUGS (6)
  1. PRIVIGEN [Suspect]
     Active Substance: HUMAN IMMUNOGLOBULIN G
     Dosage: 2 GM/KG; 10 GM (100 ML)
     Route: 042
     Dates: start: 20130416, end: 20130416
  2. PRIVIGEN [Suspect]
     Active Substance: HUMAN IMMUNOGLOBULIN G
     Dosage: 2 GM/KG; 5 GM (100 ML)
     Route: 042
     Dates: start: 20130417, end: 20130417
  3. PRIVIGEN [Suspect]
     Active Substance: HUMAN IMMUNOGLOBULIN G
     Dosage: 2  GM/KG; 10GM (100 ML)
     Route: 042
     Dates: start: 20130416, end: 20130417
  4. PRIVIGEN [Suspect]
     Active Substance: HUMAN IMMUNOGLOBULIN G
     Dosage: 2 GM/KG; 10 GM (100 ML)
     Route: 042
     Dates: start: 20130416, end: 20130416
  5. PRIVIGEN [Suspect]
     Active Substance: HUMAN IMMUNOGLOBULIN G
     Dosage: 2 GM/KG; 20 GM (150 ML)
     Route: 042
     Dates: start: 20130415, end: 20130415
  6. PRIVIGEN [Suspect]
     Active Substance: HUMAN IMMUNOGLOBULIN G
     Indication: KAWASAKI^S DISEASE
     Dosage: 2 GM/KG X 2 DAYS; 20 GM (200 ML)
     Route: 042
     Dates: start: 20130414, end: 20130415

REACTIONS (2)
  - Haemolysis [Unknown]
  - Haemoglobin decreased [Unknown]

NARRATIVE: CASE EVENT DATE: 20130414
